FAERS Safety Report 16471010 (Version 1)
Quarter: 2019Q2

REPORT INFORMATION
  Report Type: Spontaneous
  Country: US (occurrence: US)
  Receive Date: 20190624
  Receipt Date: 20190624
  Transmission Date: 20190711
  Serious: Yes (Death, Hospitalization, Other)
  Sender: FDA-Public Use
  Company Number: US-GILEAD-2019-0414711

PATIENT
  Age: 57 Year
  Sex: Male

DRUGS (9)
  1. BIKTARVY [Suspect]
     Active Substance: BICTEGRAVIR SODIUM\EMTRICITABINE\TENOFOVIR ALAFENAMIDE FUMARATE
     Dosage: 1 DOSAGE FORM, QD
     Route: 048
     Dates: start: 20190611
  2. ZYPREXA [Concomitant]
     Active Substance: OLANZAPINE
  3. THYROXINE [Concomitant]
     Active Substance: LEVOTHYROXINE
  4. PROZAC [Concomitant]
     Active Substance: FLUOXETINE HYDROCHLORIDE
  5. LOSARTAN. [Concomitant]
     Active Substance: LOSARTAN
  6. ALBUTEROL HFA [Concomitant]
     Active Substance: ALBUTEROL SULFATE
  7. BIKTARVY [Suspect]
     Active Substance: BICTEGRAVIR SODIUM\EMTRICITABINE\TENOFOVIR ALAFENAMIDE FUMARATE
     Indication: HIV INFECTION
     Dosage: 1 DOSAGE FORM, QD
     Route: 048
     Dates: start: 20190415
  8. HCTZ [Concomitant]
     Active Substance: HYDROCHLOROTHIAZIDE
  9. GENVOYA [Suspect]
     Active Substance: COBICISTAT\ELVITEGRAVIR\EMTRICITABINE\TENOFOVIR ALAFENAMIDE FUMARATE
     Indication: HIV INFECTION
     Dosage: 1 DOSAGE FORM, QD
     Route: 048

REACTIONS (13)
  - Metabolic acidosis [Recovering/Resolving]
  - Ataxia [Unknown]
  - Diabetic ketoacidosis [Recovered/Resolved]
  - Acute kidney injury [Unknown]
  - Pyrexia [Not Recovered/Not Resolved]
  - Hypothyroidism [Unknown]
  - Cyanosis [Unknown]
  - Vomiting [Unknown]
  - Parkinsonian rest tremor [Unknown]
  - Sepsis [Recovered/Resolved]
  - Cardiac arrest [Fatal]
  - Bradyarrhythmia [Unknown]
  - Hypotension [Unknown]

NARRATIVE: CASE EVENT DATE: 20190603
